FAERS Safety Report 15081110 (Version 3)
Quarter: 2022Q1

REPORT INFORMATION
  Report Type: Report from Study
  Country: US (occurrence: US)
  Receive Date: 20180628
  Receipt Date: 20220130
  Transmission Date: 20220423
  Serious: Yes (Death, Hospitalization, Other)
  Sender: FDA-Public Use
  Company Number: US-JAZZ-2018-US-008731

PATIENT
  Age: 16 Year
  Sex: Male

DRUGS (2)
  1. DEFITELIO [Suspect]
     Active Substance: DEFIBROTIDE SODIUM
     Indication: Venoocclusive disease
     Dosage: DOSING DETAILS NOT PROVIDED
  2. ANTI THROMBIN III [Concomitant]
     Indication: Venoocclusive disease

REACTIONS (2)
  - Death [Fatal]
  - Renal failure [Unknown]
